FAERS Safety Report 14954003 (Version 4)
Quarter: 2018Q3

REPORT INFORMATION
  Report Type: Report from Study
  Country: PL (occurrence: PL)
  Receive Date: 20180530
  Receipt Date: 20180723
  Transmission Date: 20181010
  Serious: Yes (Death, Hospitalization)
  Sender: FDA-Public Use
  Company Number: PL-AMGEN-POLCT2018045295

PATIENT
  Age: 63 Year
  Sex: Female
  Weight: 81 kg

DRUGS (48)
  1. LYRICA [Concomitant]
     Active Substance: PREGABALIN
     Dosage: 75 TO 150 MG, UNK
     Dates: start: 201708
  2. SEVREDOL [Concomitant]
     Active Substance: MORPHINE
     Dosage: 20 MG, UNK
     Dates: start: 20180201, end: 20180301
  3. KETONAL [Concomitant]
     Active Substance: KETOPROFEN
     Dosage: 50 MG, UNK
     Dates: start: 20180222, end: 20180305
  4. AUGMENTIN [Concomitant]
     Active Substance: AMOXICILLIN\CLAVULANATE POTASSIUM
     Dosage: 1 G, UNK
     Dates: start: 20180227, end: 20180305
  5. MILURIT [Concomitant]
     Active Substance: ALLOPURINOL
     Dosage: 300 MG, UNK
     Dates: start: 20180119
  6. DARATUMUMAB [Suspect]
     Active Substance: DARATUMUMAB
     Indication: PLASMA CELL MYELOMA
     Dosage: 1264 MG, PER CHEMO REGIM
     Route: 042
     Dates: start: 20180220, end: 20180320
  7. MATRIFEN [Concomitant]
     Active Substance: FENTANYL
     Dosage: 50 UNK, UNK
     Dates: start: 20180205
  8. SALBUTAMOL [Concomitant]
     Active Substance: ALBUTEROL
     Dosage: 2.5 MG, UNK
     Dates: start: 20180220, end: 20180301
  9. HYDROCORTISONE. [Concomitant]
     Active Substance: HYDROCORTISONE
     Dosage: 100 MG, UNK
     Route: 042
     Dates: start: 20180220, end: 20180220
  10. CALPEROS [Concomitant]
     Active Substance: CALCIUM CARBONATE
     Dosage: 1000 MG, UNK
     Dates: start: 201611, end: 2018
  11. MONTELUCAST [Concomitant]
     Active Substance: MONTELUKAST SODIUM
     Dosage: 10 MG, UNK
     Dates: start: 20180227
  12. LACIDOFIL [Concomitant]
     Active Substance: LACTOBACILLUS ACIDOPHILUS\LACTOBACILLUS RHAMNOSUS
     Dosage: 1 UNK, UNK
     Dates: start: 20180122, end: 20180222
  13. TAMIFLU [Concomitant]
     Active Substance: OSELTAMIVIR PHOSPHATE
     Dosage: 75 MG, UNK
     Dates: start: 20180307, end: 20180316
  14. LEVOXA [Concomitant]
     Active Substance: LEVOFLOXACIN
     Dosage: 500 MG, UNK
     Dates: start: 20180314
  15. TAZOCIN [Concomitant]
     Active Substance: PIPERACILLIN SODIUM\TAZOBACTAM SODIUM
     Dosage: 4.5 G, UNK
     Dates: start: 20180306, end: 20180312
  16. CARFILZOMIB [Suspect]
     Active Substance: CARFILZOMIB
     Indication: PLASMA CELL MYELOMA
     Dosage: 108 MG, PER CHEMO REGIM
     Route: 042
     Dates: start: 20180220, end: 20180321
  17. CIPROFLOXACINE [Concomitant]
     Active Substance: CIPROFLOXACIN
     Dosage: 500 MG, UNK
     Dates: start: 20180129, end: 20180202
  18. DICLOFENAC [Concomitant]
     Active Substance: DICLOFENAC
     Dosage: 1 UNK, UNK
     Dates: start: 20180126, end: 20180131
  19. NACL [Concomitant]
     Active Substance: SODIUM CHLORIDE
     Dosage: 250 TO 500 ML, UNK
     Route: 042
     Dates: start: 20180221
  20. ZOLEDRONIC ACID [Concomitant]
     Active Substance: ZOLEDRONIC ACID
     Dosage: 4 MG, UNK
     Route: 042
     Dates: start: 20180222, end: 20180321
  21. CLEXANE [Concomitant]
     Active Substance: ENOXAPARIN SODIUM
     Dosage: 40 MG, UNK
     Route: 058
     Dates: start: 20180227, end: 20180306
  22. ERDOMED [Concomitant]
     Active Substance: ERDOSTEINE
     Dosage: 300 MG, UNK
     Dates: start: 20180301, end: 20180310
  23. HELICID [Concomitant]
     Active Substance: OMEPRAZOLE
     Dosage: 20 MG, UNK
     Dates: start: 201705, end: 2018
  24. SOLU?MEDROL [Concomitant]
     Active Substance: METHYLPREDNISOLONE SODIUM SUCCINATE
     Dosage: 20 MG, UNK
     Route: 042
     Dates: start: 20180222
  25. DEXAMETHASONE. [Suspect]
     Active Substance: DEXAMETHASONE
     Indication: PLASMA CELL MYELOMA
     Dosage: 20?40 MG, UNK
     Route: 065
     Dates: start: 20180207, end: 20180321
  26. DULSEVIA [Concomitant]
     Dosage: 30 TO 60 MG, UNK
     Dates: start: 201702
  27. MUPIROCIN. [Concomitant]
     Active Substance: MUPIROCIN
     Dosage: UNK
     Dates: start: 20180126, end: 20180202
  28. TRAMAL [Concomitant]
     Active Substance: TRAMADOL
     Dosage: 50 MG, UNK
     Dates: start: 20180123, end: 20180131
  29. PYRALGIN [Concomitant]
     Active Substance: DIPYRONE
     Dosage: 1 UNK, UNK  TO 3 ML, UNK
     Dates: start: 20180220, end: 20180307
  30. CAPTOPRIL. [Concomitant]
     Active Substance: CAPTOPRIL
     Dosage: 12.5 MG, UNK
     Dates: start: 20180222, end: 20180222
  31. TRITACE [Concomitant]
     Active Substance: RAMIPRIL
     Dosage: 2.5 MG, UNK
     Dates: start: 20180222
  32. AFLEGAN [Concomitant]
     Dosage: 15 MG, UNK
     Dates: start: 20180307, end: 20180312
  33. PERFALGAN [Concomitant]
     Active Substance: ACETAMINOPHEN
     Dosage: 1 G, UNK
     Dates: start: 20180306, end: 20180306
  34. CLEMASTINE [Concomitant]
     Active Substance: CLEMASTINE
     Dosage: 2 MG, UNK
     Route: 048
     Dates: start: 20180220
  35. MONTELUKAST [Concomitant]
     Active Substance: MONTELUKAST SODIUM
     Dosage: 10 MG, UNK
     Route: 048
     Dates: start: 20180220
  36. ALTACET [Concomitant]
     Active Substance: ALUMINUM ACETATE
     Dosage: UNK
     Dates: start: 20180222, end: 20180222
  37. NASIVIN [Concomitant]
     Active Substance: OXYMETAZOLINE
     Dosage: UNK
     Dates: start: 20180301, end: 20180305
  38. ACC [Concomitant]
     Active Substance: ACETYLCYSTEINE
     Dosage: 1 UNK, UNK
     Dates: start: 20180306, end: 20180307
  39. HEVIRAN [Concomitant]
     Active Substance: ACYCLOVIR
     Dosage: 800 MG, UNK
     Dates: start: 201611
  40. TARGIN [Concomitant]
     Active Substance: NALOXONE HYDROCHLORIDE\OXYCODONE HYDROCHLORIDE
     Dosage: 40 MG, UNK
     Dates: start: 201703, end: 20180123
  41. ZOFRAN [Concomitant]
     Active Substance: ONDANSETRON HYDROCHLORIDE
     Dosage: 8 MG, UNK
     Dates: start: 20180220, end: 20180321
  42. AVAMYS [Concomitant]
     Active Substance: FLUTICASONE FUROATE
     Dosage: 2 UNK, UNK
     Dates: start: 20180301
  43. KALIPOZ [Concomitant]
     Active Substance: POTASSIUM CHLORIDE
     Dosage: 1 UNK, UNK
     Dates: start: 20180119
  44. PARACETAMOL [Concomitant]
     Active Substance: ACETAMINOPHEN
     Dosage: 500 TO 1000 MG, UNK
     Dates: start: 20180126
  45. SEBIDIN [Concomitant]
     Dosage: 1 UNK, UNK
     Dates: start: 20180122, end: 20180131
  46. ALFADIOL [Concomitant]
     Active Substance: ALFACALCIDOL
     Dosage: 0.25 MUG, UNK
     Dates: start: 201611, end: 2018
  47. FUROSEMIDE. [Concomitant]
     Active Substance: FUROSEMIDE
     Dosage: 20 MG, UNK
     Route: 042
     Dates: start: 20180221, end: 20180313
  48. FLUCONAZOLE. [Concomitant]
     Active Substance: FLUCONAZOLE
     Dosage: 200 MG, UNK
     Dates: start: 20180307, end: 20180321

REACTIONS (2)
  - Plasma cell myeloma [Fatal]
  - Pneumonia [Recovered/Resolved]

NARRATIVE: CASE EVENT DATE: 20180324
